FAERS Safety Report 7441601-6 (Version None)
Quarter: 2011Q2

REPORT INFORMATION
  Report Type: 
  Country: None (occurrence: None)
  Receive Date: 20110428
  Receipt Date: 20110426
  Transmission Date: 20111010
  Serious: No
  Sender: FDA-Public Use
  Company Number: US-PFIZER INC-2011090539

PATIENT
  Sex: Female
  Weight: 63 kg

DRUGS (3)
  1. PRISTIQ [Suspect]
     Dosage: 50 MG, EVERY TWO DAYS
     Route: 048
     Dates: end: 20110423
  2. PRISTIQ [Suspect]
     Dosage: 50 MG, ALTERNATE DAY
     Route: 048
  3. PRISTIQ [Suspect]
     Indication: DEPRESSION
     Dosage: 50 MG, 1X/DAY
     Route: 048
     Dates: start: 20101001

REACTIONS (3)
  - EMOTIONAL DISORDER [None]
  - PARAESTHESIA [None]
  - NAUSEA [None]
